FAERS Safety Report 9856666 (Version 1)
Quarter: 2014Q1

REPORT INFORMATION
  Report Type: Spontaneous
  Country: CA (occurrence: CA)
  Receive Date: 20140130
  Receipt Date: 20140130
  Transmission Date: 20141002
  Serious: Yes (Other)
  Sender: FDA-Public Use
  Company Number: CA-GLAXOSMITHKLINE-A1056039A

PATIENT
  Age: 27 Year
  Sex: Female

DRUGS (2)
  1. LAMICTAL [Suspect]
     Indication: EPILEPSY
     Dosage: 100MG TWICE PER DAY
     Route: 048
     Dates: start: 201107
  2. KEPPRA [Concomitant]
     Dosage: 3000MG UNKNOWN
     Route: 065

REACTIONS (3)
  - Withdrawal syndrome [Unknown]
  - Epilepsy [Recovered/Resolved]
  - Aura [Recovered/Resolved]
